FAERS Safety Report 6363248-5 (Version None)
Quarter: 2009Q3

REPORT INFORMATION
  Report Type: 
  Country: None (occurrence: None)
  Receive Date: 20090919
  Receipt Date: 20090623
  Transmission Date: 20100115
  Serious: No
  Sender: FDA-Public Use
  Company Number: US-ABBOTT-09P-163-0581762-00

PATIENT
  Sex: Female
  Weight: 118.95 kg

DRUGS (10)
  1. HUMIRA [Suspect]
     Indication: RHEUMATOID ARTHRITIS
     Route: 058
     Dates: start: 20081001
  2. METHOTREXATE [Suspect]
     Indication: RHEUMATOID ARTHRITIS
     Route: 048
     Dates: start: 20090601
  3. METHOTREXATE [Suspect]
     Route: 048
     Dates: end: 20090601
  4. METFORMIN HCL [Concomitant]
     Indication: DIABETES MELLITUS
  5. HYDROCORTISONE [Concomitant]
     Indication: DRUG USE FOR UNKNOWN INDICATION
  6. ENALAPRIL MALEATE [Concomitant]
     Indication: HYPERTENSION
  7. ACTOS [Concomitant]
     Indication: DIABETES MELLITUS
  8. SIMVASTATIN [Concomitant]
     Indication: BLOOD CHOLESTEROL INCREASED
  9. ASPIRIN [Concomitant]
     Indication: DRUG USE FOR UNKNOWN INDICATION
  10. OMEPRAZOL [Concomitant]
     Indication: GASTRIC DISORDER

REACTIONS (3)
  - DYSGEUSIA [None]
  - PAROSMIA [None]
  - WHITE BLOOD CELL COUNT DECREASED [None]
